FAERS Safety Report 7209673-1 (Version None)
Quarter: 2011Q1

REPORT INFORMATION
  Report Type: 
  Country: None (occurrence: None)
  Receive Date: 20110104
  Receipt Date: 20101221
  Transmission Date: 20110831
  Serious: Yes (Other)
  Sender: FDA-Public Use
  Company Number: GB-JNJFOC-20110100562

PATIENT
  Sex: Female

DRUGS (7)
  1. CO-DANTHRAMER [Concomitant]
  2. PARACETAMOL [Suspect]
     Route: 048
  3. PARACETAMOL [Suspect]
     Indication: PRODUCT USED FOR UNKNOWN INDICATION
     Route: 048
  4. CLOTRIMAZOLE [Concomitant]
  5. ACYCLOVIR [Concomitant]
     Route: 061
  6. CEFADROXIL [Concomitant]
  7. DIHYDROCODEINE BITARTRATE INJ [Suspect]
     Indication: PRODUCT USED FOR UNKNOWN INDICATION
     Route: 048

REACTIONS (2)
  - OVERDOSE [None]
  - DRUG EXPOSURE DURING PREGNANCY [None]
